FAERS Safety Report 5415848-4 (Version None)
Quarter: 2007Q3

REPORT INFORMATION
  Report Type: 
  Country: None (occurrence: None)
  Receive Date: 20070815
  Receipt Date: 20070803
  Transmission Date: 20080115
  Serious: Yes (Life-Threatening, Hospitalization, Other)
  Sender: FDA-Public Use
  Company Number: JP-PFIZER INC-2007065319

PATIENT
  Sex: Female
  Weight: 50 kg

DRUGS (12)
  1. ZOLOFT [Suspect]
     Indication: DEPRESSION
     Route: 048
     Dates: start: 20070719, end: 20070801
  2. LORAZEPAM [Suspect]
     Indication: DEPRESSION
     Route: 048
     Dates: start: 20070704, end: 20070801
  3. BROTIZOLAM [Suspect]
     Indication: INSOMNIA
  4. ALCOHOL [Suspect]
  5. CARVEDILOL [Concomitant]
     Indication: HYPERTENSION
     Route: 048
  6. CANDESARTAN CILEXETIL [Concomitant]
     Indication: HYPERTENSION
     Route: 048
     Dates: start: 20070704
  7. TOWARAT [Concomitant]
     Indication: HYPERTENSION
     Route: 048
     Dates: start: 20070711
  8. OMEPRAZOLE [Concomitant]
     Indication: GASTRITIS
     Route: 048
     Dates: start: 20070312
  9. SAIBOKU-TO [Concomitant]
     Route: 048
     Dates: start: 20030613
  10. LEXOTAN [Concomitant]
     Route: 048
     Dates: start: 20031022
  11. AMOBAN [Concomitant]
     Indication: INSOMNIA
     Route: 048
     Dates: start: 20060127
  12. ZOLPIDEM [Concomitant]
     Indication: INSOMNIA
     Route: 048
     Dates: start: 20060127

REACTIONS (8)
  - ALCOHOLISM [None]
  - DEPRESSED LEVEL OF CONSCIOUSNESS [None]
  - DEPRESSION [None]
  - DRUG EFFECT DECREASED [None]
  - INSOMNIA [None]
  - OVERDOSE [None]
  - SOCIAL AVOIDANT BEHAVIOUR [None]
  - SUICIDAL IDEATION [None]
